FAERS Safety Report 7232737-3 (Version None)
Quarter: 2011Q1

REPORT INFORMATION
  Report Type: 
  Country: None (occurrence: None)
  Receive Date: 20110119
  Receipt Date: 20110107
  Transmission Date: 20110831
  Serious: Yes (Death)
  Sender: FDA-Public Use
  Company Number: JP-ASTRAZENECA-2011SE02161

PATIENT
  Age: 78 Year
  Sex: Female
  Weight: 64 kg

DRUGS (7)
  1. NORVASC [Concomitant]
     Route: 048
     Dates: start: 19980722
  2. BASEN [Concomitant]
     Route: 048
     Dates: start: 20090324
  3. ACTOS [Concomitant]
     Route: 048
  4. MEPTIN [Concomitant]
     Route: 048
     Dates: start: 19990519
  5. ECARD COMBINATION TABLETS HD [Suspect]
     Indication: HYPERTENSION
     Route: 048
     Dates: start: 20100209
  6. LASIX [Concomitant]
     Route: 048
     Dates: start: 19950708
  7. THEO SLOW [Concomitant]
     Route: 048
     Dates: start: 19990519

REACTIONS (1)
  - CEREBRAL HAEMORRHAGE [None]
